FAERS Safety Report 6888559-6 (Version None)
Quarter: 2010Q3

REPORT INFORMATION
  Report Type: 
  Country: None (occurrence: None)
  Receive Date: 20100730
  Receipt Date: 20100721
  Transmission Date: 20110219
  Serious: Yes (Hospitalization)
  Sender: FDA-Public Use
  Company Number: BR-ABBOTT-10P-020-0659463-00

PATIENT
  Sex: Female
  Weight: 93 kg

DRUGS (11)
  1. HUMIRA [Suspect]
     Indication: RHEUMATOID ARTHRITIS
     Route: 058
     Dates: start: 20070601
  2. METHOTREXATE [Concomitant]
     Indication: RHEUMATOID ARTHRITIS
     Route: 048
     Dates: start: 20100701
  3. DILTIAZEM [Concomitant]
     Indication: ARRHYTHMIA
     Route: 048
  4. PROPATYLNITRATE [Concomitant]
     Indication: ARRHYTHMIA
     Route: 048
  5. LEVOTHYROXINE SODIUM [Concomitant]
     Indication: THYROID DISORDER
     Route: 048
  6. OMEPRAZOLE [Concomitant]
     Indication: ULCER
     Route: 048
  7. PREDNISONE [Concomitant]
     Indication: RHEUMATOID ARTHRITIS
     Route: 048
  8. BROMOPRIDE [Concomitant]
     Indication: DYSPEPSIA
     Route: 048
  9. CIPROFIBRATE [Concomitant]
     Indication: BLOOD CHOLESTEROL ABNORMAL
     Route: 048
  10. VITAMIN B COMPLEX CAP [Concomitant]
     Indication: RENAL MASS
     Route: 048
  11. ALLOPURINOL [Concomitant]
     Indication: BLOOD URIC ACID ABNORMAL
     Route: 048

REACTIONS (6)
  - ANAEMIA [None]
  - BLOOD CHOLESTEROL ABNORMAL [None]
  - RENAL MASS [None]
  - THYROID NEOPLASM [None]
  - VESSEL PERFORATION [None]
  - WEIGHT INCREASED [None]
